FAERS Safety Report 6556912-6 (Version None)
Quarter: 2010Q1

REPORT INFORMATION
  Report Type: 
  Country: None (occurrence: None)
  Receive Date: 20100126
  Receipt Date: 20100114
  Transmission Date: 20100710
  Serious: Yes (Hospitalization)
  Sender: FDA-Public Use
  Company Number: 004726

PATIENT
  Sex: Female
  Weight: 54 kg

DRUGS (5)
  1. KEPPRA [Suspect]
     Indication: EPILEPSY
     Dosage: 500 MG BID ORAL, 1250 MG ORAL
     Route: 048
     Dates: start: 20090615
  2. PHENYTOIN [Concomitant]
  3. THIAMINE [Concomitant]
  4. BISOPROLOL [Concomitant]
  5. VITAMIN B COMPLEX /01753401/ [Concomitant]

REACTIONS (1)
  - GRAND MAL CONVULSION [None]
